FAERS Safety Report 15369365 (Version 1)
Quarter: 2018Q3

REPORT INFORMATION
  Report Type: Other
  Country: CA (occurrence: CA)
  Receive Date: 20180911
  Receipt Date: 20180911
  Transmission Date: 20181010
  Serious: Yes (Other)
  Sender: FDA-Public Use
  Company Number: CA-APOTEX-2018AP020115

PATIENT
  Age: 25 Year
  Sex: Male
  Weight: 52 kg

DRUGS (3)
  1. CEFIXIME. [Suspect]
     Active Substance: CEFIXIME
     Indication: CHLAMYDIAL INFECTION
     Dosage: UNK
     Route: 065
  2. AZITHROMYCIN ANHYDROUS. [Suspect]
     Active Substance: AZITHROMYCIN ANHYDROUS
     Indication: CHLAMYDIAL INFECTION
     Dosage: UNK
     Route: 065
  3. REMICADE [Suspect]
     Active Substance: INFLIXIMAB
     Indication: CROHN^S DISEASE
     Dosage: 5 MG/KG, ONCE EVERY 8 WEEKS
     Route: 042

REACTIONS (2)
  - Headache [Recovered/Resolved]
  - Chlamydial infection [Recovered/Resolved]
